FAERS Safety Report 5290227-1 (Version None)
Quarter: 2007Q2

REPORT INFORMATION
  Report Type: 
  Country: None (occurrence: None)
  Receive Date: 20070402
  Receipt Date: 20070327
  Transmission Date: 20071010
  Serious: Yes (Death)
  Sender: FDA-Public Use
  Company Number: 20073650

PATIENT
  Age: 33 Year
  Sex: Female

DRUGS (4)
  1. LIORESAL [Suspect]
     Indication: MUSCLE SPASTICITY
     Dosage: MCG, DAILY, INTRATHECAL
     Route: 037
  2. CLONIDINE [Concomitant]
  3. HYDROMORPHONE HCL [Concomitant]
  4. BUPIVACAINE [Concomitant]

REACTIONS (1)
  - OVARIAN CANCER METASTATIC [None]
